FAERS Safety Report 24538444 (Version 1)
Quarter: 2024Q4

REPORT INFORMATION
  Report Type: Spontaneous
  Country: US (occurrence: US)
  Receive Date: 20241023
  Receipt Date: 20241023
  Transmission Date: 20250115
  Serious: Yes (Hospitalization, Other)
  Sender: AZURITY PHARMACEUTICALS
  Company Number: US-AZURITY PHARMACEUTICALS, INC.-AZR202410-000894

PATIENT
  Sex: Female

DRUGS (1)
  1. BACLOFEN [Suspect]
     Active Substance: BACLOFEN
     Indication: Product used for unknown indication
     Dosage: UNK
     Route: 065

REACTIONS (14)
  - Bundle branch block right [Recovering/Resolving]
  - Defect conduction intraventricular [Recovering/Resolving]
  - Respiratory acidosis [Recovering/Resolving]
  - Electrocardiogram ST segment elevation [Recovering/Resolving]
  - Stress cardiomyopathy [Recovering/Resolving]
  - Sinus bradycardia [Recovering/Resolving]
  - Hypertension [Recovering/Resolving]
  - Troponin increased [Recovering/Resolving]
  - Hypokalaemia [Recovering/Resolving]
  - Respiratory distress [Recovering/Resolving]
  - Hypotension [Recovering/Resolving]
  - Unresponsive to stimuli [Recovering/Resolving]
  - Toxicity to various agents [Recovering/Resolving]
  - Intentional overdose [Unknown]
